FAERS Safety Report 8936724 (Version 1)
Quarter: 2012Q4

REPORT INFORMATION
  Report Type: 
  Country: BR (occurrence: BR)
  Receive Date: 20121130
  Receipt Date: 20121130
  Transmission Date: 20130627
  Serious: Yes (Hospitalization)
  Sender: FDA-Public Use
  Company Number: BR-ASTRAZENECA-2012SE89202

PATIENT
  Age: 62 Year
  Sex: Male
  Weight: 83 kg

DRUGS (7)
  1. SYMBICORT TURBUHALER [Suspect]
     Indication: DYSPNOEA
     Dosage: 160/4.5 MCG, BID
     Route: 055
  2. ASPIRIN PREVENT [Concomitant]
     Route: 048
  3. CARDIZEM [Concomitant]
     Route: 048
  4. GLIFAGE [Concomitant]
     Indication: DIABETES MELLITUS
     Route: 048
  5. JANUMET [Concomitant]
     Indication: DIABETES MELLITUS
     Route: 048
  6. RIVOTRIL [Concomitant]
     Route: 048
  7. ZYLORIX [Concomitant]
     Route: 048

REACTIONS (1)
  - Venous occlusion [Recovered/Resolved]
